FAERS Safety Report 7786032-4 (Version None)
Quarter: 2011Q3

REPORT INFORMATION
  Report Type: 
  Country: None (occurrence: None)
  Receive Date: 20110929
  Receipt Date: 20080801
  Transmission Date: 20111222
  Serious: Yes (Disabling, Other)
  Sender: FDA-Public Use
  Company Number: US-BAYER-200825660NA

PATIENT
  Age: 62 Year
  Sex: Female
  Weight: 92.517 kg

DRUGS (38)
  1. MAGNEVIST [Suspect]
     Dates: start: 20060718, end: 20060718
  2. LEVOXYL [Concomitant]
  3. ISOSORBIDE DINITRATE [Concomitant]
  4. COZAAR [Concomitant]
  5. TOPROL-XL [Concomitant]
  6. LANTUS [Concomitant]
  7. ZEMPLAR [Concomitant]
  8. NORVASC [Concomitant]
  9. AVANDIA [Concomitant]
  10. MAGNEVIST [Suspect]
     Indication: NUCLEAR MAGNETIC RESONANCE IMAGING
     Dosage: UNK
     Dates: start: 20030930, end: 20030930
  11. MAGNEVIST [Suspect]
     Indication: NUCLEAR MAGNETIC RESONANCE IMAGING BRAIN
     Dosage: UNK
     Dates: start: 20031006, end: 20031006
  12. MAGNEVIST [Suspect]
     Dates: start: 20061128, end: 20061128
  13. FORTAZ [Concomitant]
  14. LOMOTIL [Concomitant]
  15. FERROUS SULFATE TAB [Concomitant]
     Route: 042
  16. GADOLINIUM IN UNSPECIFIED DRUG [Suspect]
     Indication: NUCLEAR MAGNETIC RESONANCE IMAGING
     Dosage: 20 ML, UNK
     Dates: start: 20070105
  17. LYRICA [Concomitant]
  18. CELEXA [Concomitant]
  19. NITROGLYCERIN [Concomitant]
  20. EPOGEN [Concomitant]
  21. CATAPRES-TTS-1 [Concomitant]
     Route: 061
  22. SYNTHROID [Concomitant]
  23. NEURONTIN [Concomitant]
  24. GLUCOSAMINE [Concomitant]
  25. PREVACID [Concomitant]
  26. QUININE SULFATE [Concomitant]
  27. MAGNEVIST [Suspect]
     Dates: start: 20060829, end: 20060829
  28. PAXIL [Concomitant]
  29. RENAGEL [Concomitant]
  30. LUNESTA [Concomitant]
  31. FOSRENOL [Concomitant]
  32. CALCIUM ACETATE [Concomitant]
  33. MAGNEVIST [Suspect]
     Dates: start: 20040225, end: 20040225
  34. MAGNEVIST [Suspect]
     Dates: start: 20060606, end: 20060606
  35. COREG [Concomitant]
  36. NEPHROCAPS [Concomitant]
  37. ZANAFLEX [Concomitant]
  38. LIPITOR [Concomitant]

REACTIONS (14)
  - SKIN INDURATION [None]
  - PAIN [None]
  - QUALITY OF LIFE DECREASED [None]
  - ANXIETY [None]
  - SKIN TIGHTNESS [None]
  - EMOTIONAL DISTRESS [None]
  - SKIN FIBROSIS [None]
  - GENERAL PHYSICAL HEALTH DETERIORATION [None]
  - MOBILITY DECREASED [None]
  - INJURY [None]
  - SCAR [None]
  - NEPHROGENIC SYSTEMIC FIBROSIS [None]
  - FIBROSIS [None]
  - ANHEDONIA [None]
